FAERS Safety Report 5366967-2 (Version None)
Quarter: 2007Q2

REPORT INFORMATION
  Report Type: 
  Country: None (occurrence: None)
  Receive Date: 20070622
  Receipt Date: 20070612
  Transmission Date: 20071010
  Serious: Yes (Death)
  Sender: FDA-Public Use
  Company Number: HQWYE952908JUL04

PATIENT
  Sex: Female

DRUGS (3)
  1. PREMPRO [Suspect]
     Dosage: UNKNOWN
     Dates: start: 19970301, end: 20000501
  2. PREMARIN [Suspect]
     Dosage: UNKNOWN
     Dates: start: 19950601, end: 19970301
  3. PROVERA [Suspect]
     Dosage: UNKNOWN
     Dates: start: 19950601, end: 19970301

REACTIONS (1)
  - BREAST CANCER METASTATIC [None]
